FAERS Safety Report 11420632 (Version 2)
Quarter: 2015Q4

REPORT INFORMATION
  Report Type: Spontaneous
  Country: US (occurrence: US)
  Receive Date: 20150826
  Receipt Date: 20151012
  Transmission Date: 20160304
  Serious: No
  Sender: FDA-Public Use
  Company Number: US-ASTRAZENECA-2015SE79707

PATIENT
  Sex: Male

DRUGS (1)
  1. MOVANTIK [Suspect]
     Active Substance: NALOXEGOL OXALATE
     Indication: CONSTIPATION
     Route: 048

REACTIONS (7)
  - Constipation [Unknown]
  - Faeces soft [Unknown]
  - Faeces hard [Unknown]
  - Abdominal pain upper [Unknown]
  - Intentional product misuse [Unknown]
  - Flatulence [Unknown]
  - Gastrointestinal pain [Unknown]
